FAERS Safety Report 4847458-1 (Version None)
Quarter: 2005Q4

REPORT INFORMATION
  Report Type: 
  Country: None (occurrence: None)
  Receive Date: 20051205
  Receipt Date: 20051201
  Transmission Date: 20060501
  Serious: Yes (Other)
  Sender: FDA-Public Use
  Company Number: THQ2005A01012

PATIENT
  Sex: Female

DRUGS (1)
  1. LANSOPRAZOLE [Suspect]

REACTIONS (2)
  - BLOOD GASTRIN INCREASED [None]
  - NEUROENDOCRINE TUMOUR [None]
